FAERS Safety Report 6043427-7 (Version None)
Quarter: 2009Q1

REPORT INFORMATION
  Report Type: 
  Country: None (occurrence: None)
  Receive Date: 20090115
  Receipt Date: 20090115
  Transmission Date: 20090719
  Serious: No
  Sender: FDA-Public Use
  Company Number: None

PATIENT
  Age: 49 Year
  Sex: Male
  Weight: 102 kg

DRUGS (8)
  1. AVELOX [Suspect]
     Indication: PNEUMONIA
     Dosage: 400 MG Q24H IV
     Route: 042
     Dates: start: 20081126, end: 20081129
  2. NEXIUM [Suspect]
     Indication: PROPHYLAXIS AGAINST GASTROINTESTINAL ULCER
     Dosage: 40 MG Q24H IV
     Route: 042
     Dates: start: 20081127, end: 20081201
  3. DUONEB [Concomitant]
  4. MORPHINE [Concomitant]
  5. NEURONTIN [Concomitant]
  6. SOLU-MEDROL [Concomitant]
  7. ZITHROMAX [Concomitant]
  8. VANCOMYCIN HCL [Concomitant]

REACTIONS (1)
  - PNEUMONIA [None]
